FAERS Safety Report 9398586 (Version 2)
Quarter: 2013Q3

REPORT INFORMATION
  Report Type: Spontaneous
  Country: US (occurrence: US)
  Receive Date: 20130712
  Receipt Date: 20130801
  Transmission Date: 20140515
  Serious: Yes (Other)
  Sender: FDA-Public Use
  Company Number: US-GILEAD-2013-0078833

PATIENT
  Age: 50 Year
  Sex: Female

DRUGS (4)
  1. LETAIRIS [Suspect]
     Indication: PULMONARY ARTERIAL HYPERTENSION
     Dosage: 5 MG, QD
     Route: 048
     Dates: start: 201303
  2. LETAIRIS [Suspect]
     Dosage: 2.5 MG, QD
     Route: 048
     Dates: end: 201306
  3. FUROSEMIDE [Concomitant]
  4. CARVEDILOL [Concomitant]

REACTIONS (2)
  - Dyspnoea [Unknown]
  - Oedema peripheral [Unknown]
